FAERS Safety Report 22587383 (Version 1)
Quarter: 2023Q2

REPORT INFORMATION
  Report Type: Report from Study
  Country: DE (occurrence: DE)
  Receive Date: 20230612
  Receipt Date: 20230612
  Transmission Date: 20230722
  Serious: Yes (Other)
  Sender: FDA-Public Use
  Company Number: DE-BIOGEN-2022BI01149226

PATIENT
  Age: 32 Year
  Sex: Female
  Weight: 86 kg

DRUGS (4)
  1. TECFIDERA [Suspect]
     Active Substance: DIMETHYL FUMARATE
     Indication: Multiple sclerosis
     Route: 050
     Dates: start: 20180530, end: 20220816
  2. IODINE [Concomitant]
     Active Substance: IODINE
     Indication: Pregnancy
     Route: 050
     Dates: start: 202206
  3. FOLIC ACID [Concomitant]
     Active Substance: FOLIC ACID
     Indication: Pregnancy
     Route: 050
     Dates: start: 202206
  4. VITAMIN D [Concomitant]
     Active Substance: VITAMIN D NOS
     Indication: Pregnancy
     Route: 050
     Dates: start: 202206

REACTIONS (4)
  - Cephalo-pelvic disproportion [Recovered/Resolved]
  - Foetal malpresentation [Recovered/Resolved]
  - Amniotic fluid volume increased [Recovered/Resolved]
  - Maternal exposure during pregnancy [Recovered/Resolved]

NARRATIVE: CASE EVENT DATE: 20230417
